FAERS Safety Report 9881468 (Version 2)
Quarter: 2014Q1

REPORT INFORMATION
  Report Type: Spontaneous
  Country: TR (occurrence: TR)
  Receive Date: 20140207
  Receipt Date: 20140207
  Transmission Date: 20141002
  Serious: Yes (Life-Threatening, Hospitalization, Other)
  Sender: FDA-Public Use
  Company Number: TR-009507513-1312TUR010256

PATIENT
  Age: 54 Year
  Sex: Female
  Weight: 72 kg

DRUGS (10)
  1. SUGAMMADEX SODIUM [Suspect]
     Indication: NEUROMUSCULAR BLOCKADE
     Dosage: 100 MG, UNK
     Route: 042
     Dates: start: 20121127, end: 20121127
  2. ROCURONIUM BROMIDE [Suspect]
     Indication: NEUROMUSCULAR BLOCKADE
     Dosage: 70MG TOTAL DOSE, LAST DOSE WAS 60 MIN BEFORE THE END OF SURGERY
  3. MORPHINE SULFATE [Suspect]
     Dosage: 4 MG, UNK
  4. LIDOCAINE [Suspect]
     Dosage: 100 MG, UNK
  5. PROPOFOL [Suspect]
     Indication: ANAESTHESIA
     Dosage: 4-7 MG/KG/H
     Route: 042
     Dates: start: 20121127, end: 20121127
  6. REMIFENTANIL HYDROCHLORIDE [Suspect]
     Indication: ANAESTHESIA
     Dosage: 0.1-0.2 MG/KG/MIN INFUSION
     Route: 042
     Dates: start: 20121127, end: 20121127
  7. PROPANOL [Concomitant]
  8. SERTRALINE HYDROCHLORIDE [Concomitant]
  9. TENOXICAM [Concomitant]
     Indication: ANALGESIC THERAPY
     Dosage: 20 MG, UNK
     Route: 042
     Dates: start: 20121127, end: 20121127
  10. DIPYRONE [Concomitant]
     Indication: ANALGESIC THERAPY
     Dosage: 20-30 MINUTES BEFORE SKIN CLOSURE
     Route: 042

REACTIONS (3)
  - Respiratory failure [Recovered/Resolved]
  - Muscle rigidity [Recovered/Resolved]
  - Muscle tightness [Recovered/Resolved]
